FAERS Safety Report 19807890 (Version 2)
Quarter: 2022Q3

REPORT INFORMATION
  Report Type: Spontaneous
  Country: FR (occurrence: FR)
  Receive Date: 20210908
  Receipt Date: 20220713
  Transmission Date: 20221027
  Serious: Yes (Other)
  Sender: FDA-Public Use
  Company Number: FR-GSKCCFEMEA-CASE-01294569_AE-48956

PATIENT

DRUGS (4)
  1. FLUTICASONE FUROATE\VILANTEROL TRIFENATATE [Suspect]
     Active Substance: FLUTICASONE FUROATE\VILANTEROL TRIFENATATE
     Indication: Asthma
     Dosage: UNK
     Dates: end: 2021
  2. FLUTICASONE FUROATE\VILANTEROL TRIFENATATE [Suspect]
     Active Substance: FLUTICASONE FUROATE\VILANTEROL TRIFENATATE
     Dosage: UNK,
     Dates: start: 202108
  3. ALBUTEROL [Suspect]
     Active Substance: ALBUTEROL
     Indication: Asthma
     Dosage: UNK
  4. FLUTICASONE FUROATE\VILANTEROL TRIFENATATE [Suspect]
     Active Substance: FLUTICASONE FUROATE\VILANTEROL TRIFENATATE
     Indication: Asthma
     Dosage: UNK

REACTIONS (18)
  - Asthmatic crisis [Unknown]
  - Drug ineffective [Unknown]
  - Neck pain [Unknown]
  - Head discomfort [Unknown]
  - Hypoaesthesia [Unknown]
  - Muscle disorder [Unknown]
  - Urinary incontinence [Not Recovered/Not Resolved]
  - Nausea [Unknown]
  - Abdominal pain [Unknown]
  - Depression [Unknown]
  - Ear discomfort [Unknown]
  - Vertigo [Recovered/Resolved]
  - Weight decreased [Unknown]
  - Middle ear effusion [Unknown]
  - Ear pain [Unknown]
  - Therapy interrupted [Unknown]
  - Tremor [Unknown]
  - Superficial vein thrombosis [Unknown]
